FAERS Safety Report 6480953-0 (Version None)
Quarter: 2009Q4

REPORT INFORMATION
  Report Type: 
  Country: None (occurrence: None)
  Receive Date: 20091208
  Receipt Date: 20091204
  Transmission Date: 20100525
  Serious: Yes (Death, Hospitalization)
  Sender: FDA-Public Use
  Company Number: PHEH2009US16216

PATIENT
  Sex: Female

DRUGS (27)
  1. GLEEVEC [Suspect]
     Indication: ACUTE MYELOID LEUKAEMIA
     Dosage: 400 MG, QD
     Route: 048
     Dates: start: 20050823
  2. SINGULAIR [Concomitant]
     Dosage: 10 MG, UNK
  3. ZOCOR [Concomitant]
     Dosage: 10 MG, UNK
  4. LASIX [Concomitant]
     Dosage: 40 MG, QD
     Route: 048
  5. TRAZODONE [Concomitant]
     Dosage: 300 MG, QHS
     Route: 048
  6. TOPROL-XL [Concomitant]
     Dosage: 50 MG, UNK
  7. POTASSIUM [Concomitant]
     Dosage: 75 MG, UNK
  8. PLAVIX [Concomitant]
     Dosage: 75 MG, UNK
  9. HECTOROL [Concomitant]
     Dosage: 2.5 MCG, UNK
  10. FERROUS GLUCONATE [Concomitant]
     Dosage: 325 MG, QD
     Route: 048
  11. FLUTICASONE [Concomitant]
     Dosage: ONE INHALER, BID
  12. SPIRIVA [Concomitant]
     Dosage: 18 MCG, DAILY
  13. VALSARTAN [Concomitant]
     Dosage: 160 MG, QD
     Route: 048
  14. TYLENOL (CAPLET) [Concomitant]
     Dosage: 650 MG, Q6HRS, PRN
     Route: 048
  15. ALBUTEROL [Concomitant]
     Dosage: UNK
  16. ZOLPIDEM [Concomitant]
     Dosage: 5 MG, QHS, PRN
     Route: 048
  17. LEVEMIR [Concomitant]
     Dosage: 50 U, QHS
  18. REGULAR INSULIN [Concomitant]
     Dosage: SLIDING SCALE
  19. METOPROLOL [Concomitant]
     Dosage: 25 MG, BID
  20. MISOPROSTOL [Concomitant]
     Dosage: 100 UG, BID
     Route: 048
  21. MONTELUKAST SODIUM [Concomitant]
     Dosage: 10 MG, QD
     Route: 048
  22. MULTIVITAMINS, COMBINATIONS [Concomitant]
     Dosage: ONE TABLET, DAILY
     Route: 048
  23. LOPRESSOR [Concomitant]
     Dosage: 40 MG, BID
     Route: 048
  24. PHENYTOIN [Concomitant]
     Dosage: 300 MG, QD
     Route: 048
  25. POTASSIUM CHLORIDE [Concomitant]
     Dosage: 20 MEQ, QD
     Route: 048
  26. SIMVASTATIN [Concomitant]
     Dosage: 20 MG, QD
  27. SUCRALFATE [Concomitant]
     Dosage: 1 GM, AC/HS
     Route: 048

REACTIONS (3)
  - ANAEMIA [None]
  - FAECES DISCOLOURED [None]
  - GASTROINTESTINAL HAEMORRHAGE [None]
